FAERS Safety Report 9444681 (Version 1)
Quarter: 2013Q3

REPORT INFORMATION
  Report Type: Spontaneous
  Country: IT (occurrence: IT)
  Receive Date: 20130807
  Receipt Date: 20130807
  Transmission Date: 20140515
  Serious: Yes (Hospitalization)
  Sender: FDA-Public Use
  Company Number: IT-PFIZER INC-2013227700

PATIENT
  Age: 81 Year
  Sex: Female

DRUGS (7)
  1. CORDARONE [Suspect]
     Indication: ATRIAL FIBRILLATION
     Dosage: 200 MG, 1X/DAY
     Route: 048
     Dates: start: 20130101, end: 20130629
  2. PEPTAZOL [Concomitant]
     Dosage: UNK
  3. ASCRIPTIN [Concomitant]
     Dosage: UNK
  4. LISINOPRIL [Concomitant]
     Dosage: UNK
  5. CRESTOR [Concomitant]
     Dosage: UNK
  6. DEURSIL [Concomitant]
     Dosage: UNK
  7. NORVASC [Concomitant]
     Dosage: UNK

REACTIONS (2)
  - Bradycardia [Unknown]
  - Presyncope [Unknown]
